FAERS Safety Report 7480422-5 (Version None)
Quarter: 2011Q2

REPORT INFORMATION
  Report Type: 
  Country: None (occurrence: None)
  Receive Date: 20110506
  Receipt Date: 20110427
  Transmission Date: 20111010
  Serious: Yes (Hospitalization)
  Sender: FDA-Public Use
  Company Number: 2011SP018815

PATIENT
  Age: 1 Year

DRUGS (1)
  1. DIPROSPAN SP (BETAMETHASONE SODIUM PHOSPHATE/DIPROPIONATE) (BETAMETHAS [Suspect]
     Indication: URTICARIA
     Dosage: ; IM
     Route: 030
     Dates: start: 20101101, end: 20101101

REACTIONS (1)
  - MUSCLE CONTRACTURE [None]
